FAERS Safety Report 7504842-5 (Version None)
Quarter: 2011Q2

REPORT INFORMATION
  Report Type: 
  Country: None (occurrence: None)
  Receive Date: 20110525
  Receipt Date: 20110519
  Transmission Date: 20111010
  Serious: Yes (Hospitalization)
  Sender: FDA-Public Use
  Company Number: NL-AMGEN-NLDSP2011022384

PATIENT
  Age: 58 Year
  Sex: Female
  Weight: 63 kg

DRUGS (4)
  1. ENBREL [Suspect]
     Indication: RHEUMATOID ARTHRITIS
     Dosage: 50 MG, WEEKLY
     Dates: start: 20110418
  2. ARAVA [Suspect]
  3. ARAVA [Concomitant]
     Dosage: UNK
  4. NAPROXEN [Concomitant]
     Dosage: UNK

REACTIONS (1)
  - HYPERTENSION [None]
